FAERS Safety Report 22011464 (Version 3)
Quarter: 2023Q1

REPORT INFORMATION
  Report Type: Spontaneous
  Country: US (occurrence: US)
  Receive Date: 20230220
  Receipt Date: 20230328
  Transmission Date: 20230418
  Serious: Yes (Other)
  Sender: FDA-Public Use
  Company Number: US-PFIZER INC-PV202300030850

PATIENT
  Age: 73 Year
  Sex: Female

DRUGS (1)
  1. IBRANCE [Suspect]
     Active Substance: PALBOCICLIB
     Dosage: 125 MG

REACTIONS (10)
  - Upper limb fracture [Unknown]
  - Nausea [Unknown]
  - Sputum discoloured [Unknown]
  - Bone pain [Unknown]
  - Gait disturbance [Unknown]
  - Fatigue [Unknown]
  - Vomiting [Unknown]
  - Hypokinesia [Unknown]
  - Cancer pain [Unknown]
  - Product dose omission issue [Unknown]

NARRATIVE: CASE EVENT DATE: 20230101
